FAERS Safety Report 18430818 (Version 3)
Quarter: 2021Q1

REPORT INFORMATION
  Report Type: Spontaneous
  Country: US (occurrence: US)
  Receive Date: 20201027
  Receipt Date: 20210113
  Transmission Date: 20210419
  Serious: No
  Sender: FDA-Public Use
  Company Number: US-GLAXOSMITHKLINE-US2020212049

PATIENT
  Sex: Female

DRUGS (1)
  1. NUCALA [Suspect]
     Active Substance: MEPOLIZUMAB
     Indication: PRODUCT USED FOR UNKNOWN INDICATION
     Dosage: UNK
     Route: 058
     Dates: start: 2020

REACTIONS (5)
  - Injection site bruising [Not Recovered/Not Resolved]
  - Product complaint [Unknown]
  - Product dose omission issue [Not Recovered/Not Resolved]
  - Injection site pain [Recovered/Resolved]
  - Product storage error [Unknown]
